FAERS Safety Report 9731926 (Version 2)
Quarter: 2014Q1

REPORT INFORMATION
  Report Type: Report from Study
  Country: BR (occurrence: BR)
  Receive Date: 20131205
  Receipt Date: 20140207
  Transmission Date: 20141002
  Serious: Yes (Other)
  Sender: FDA-Public Use
  Company Number: PHHY2013BR140014

PATIENT
  Sex: Female

DRUGS (3)
  1. GILENYA [Suspect]
     Indication: MULTIPLE SCLEROSIS
     Dosage: 1 DF, QD
     Route: 048
  2. BACLOFEN [Concomitant]
     Indication: MULTIPLE SCLEROSIS
     Dosage: 3 DF, QD
     Route: 048
  3. DIAZEPAM [Concomitant]
     Indication: INSOMNIA
     Dosage: 2 DF, QD
     Route: 048

REACTIONS (1)
  - Oral pain [Not Recovered/Not Resolved]
